FAERS Safety Report 8715215 (Version 2)
Quarter: 2013Q1

REPORT INFORMATION
  Report Type: Spontaneous
  Country: BR (occurrence: BR)
  Receive Date: 20120809
  Receipt Date: 20130201
  Transmission Date: 20140127
  Serious: Yes (Hospitalization, Other)
  Sender: FDA-Public Use
  Company Number: PHHY2012BR068287

PATIENT
  Age: 70 Year
  Sex: Female

DRUGS (1)
  1. ONBREZ [Suspect]
     Dosage: UNK

REACTIONS (1)
  - Arrhythmia [Recovered/Resolved]
